FAERS Safety Report 8808973 (Version 1)
Quarter: 2012Q4

REPORT INFORMATION
  Report Type: 
  Country: US (occurrence: US)
  Receive Date: 20120926
  Receipt Date: 20120926
  Transmission Date: 20130627
  Serious: Yes (Hospitalization)
  Sender: FDA-Public Use
  Company Number: US-PFIZER INC-2012236604

PATIENT
  Sex: Female

DRUGS (2)
  1. NIFEDIPINE [Suspect]
     Dosage: UNK
  2. NORVASC [Suspect]
     Dosage: UNK

REACTIONS (5)
  - Blood pressure diastolic increased [Unknown]
  - Abdominal pain [Unknown]
  - Middle insomnia [Unknown]
  - Polyuria [Unknown]
  - Initial insomnia [Unknown]
